FAERS Safety Report 8071365-7 (Version None)
Quarter: 2012Q1

REPORT INFORMATION
  Report Type: 
  Country: None (occurrence: None)
  Receive Date: 20120125
  Receipt Date: 20120123
  Transmission Date: 20120608
  Serious: Yes (Death)
  Sender: FDA-Public Use
  Company Number: JP-B.I. PHARMACEUTICALS,INC./RIDGEFIELD-2012-BP-00498NB

PATIENT
  Sex: Male
  Weight: 68.1 kg

DRUGS (5)
  1. PLETAL [Concomitant]
     Indication: CEREBRAL INFARCTION
     Dosage: 100 MG
     Route: 048
     Dates: start: 20081028
  2. CADUET NO.3 [Concomitant]
     Indication: HYPERTENSION
     Route: 048
     Dates: start: 20111115
  3. PRADAXA [Suspect]
     Indication: ATRIAL FIBRILLATION
     Dosage: 220 MG
     Route: 048
     Dates: start: 20110531
  4. PERINDOPRIL ERBUMINE [Concomitant]
     Indication: HYPERTENSION
     Dosage: 4 MG
     Route: 048
     Dates: start: 20030926
  5. CADUET NO.3 [Concomitant]
     Indication: HYPERCHOLESTEROLAEMIA

REACTIONS (1)
  - CARDIAC FAILURE CHRONIC [None]
